FAERS Safety Report 5671914-X (Version None)
Quarter: 2008Q1

REPORT INFORMATION
  Report Type: 
  Country: None (occurrence: None)
  Receive Date: 20080319
  Receipt Date: 20080307
  Transmission Date: 20080703
  Serious: Yes (Disabling)
  Sender: FDA-Public Use
  Company Number: IN-RANBAXY-2008RR-13640

PATIENT

DRUGS (1)
  1. MINOCYCLINE HYDROCHLORIDE MR CAPSULES [Suspect]
     Dosage: UNK
     Route: 048
     Dates: start: 20080226

REACTIONS (2)
  - FALL [None]
  - JOINT INJURY [None]
